FAERS Safety Report 8085694-4 (Version None)
Quarter: 2012Q1

REPORT INFORMATION
  Report Type: 
  Country: None (occurrence: None)
  Receive Date: 20120128
  Receipt Date: 20110602
  Transmission Date: 20120608
  Serious: No
  Sender: FDA-Public Use
  Company Number: US-ABBOTT-11P-163-0729972-00

PATIENT
  Age: 27 Year
  Sex: Male

DRUGS (5)
  1. COLAZAL [Concomitant]
     Indication: CROHN'S DISEASE
  2. HUMIRA [Suspect]
     Indication: CROHN'S DISEASE
     Dosage: 80MG NEXT DOSE, THEN 40MG EOW
     Dates: start: 20110524
  3. PREDNISONE TAB [Concomitant]
     Indication: PRODUCT USED FOR UNKNOWN INDICATION
     Dosage: SLIDING SCALE (CURRENT DOSE)
  4. MULTI-VITAMIN [Concomitant]
     Indication: SUPPLEMENTATION THERAPY
  5. PREDNISONE TAB [Concomitant]
     Dosage: SLIDING SCALE

REACTIONS (2)
  - DIARRHOEA [None]
  - HAEMATOCHEZIA [None]
